FAERS Safety Report 10995128 (Version 2)
Quarter: 2015Q2

REPORT INFORMATION
  Report Type: Report from Study
  Country: AU (occurrence: AU)
  Receive Date: 20150407
  Receipt Date: 20150414
  Transmission Date: 20150821
  Serious: Yes (Other)
  Sender: FDA-Public Use
  Company Number: AU-JNJFOC-20150117751

PATIENT
  Age: 53 Year
  Sex: Female

DRUGS (3)
  1. SIMPONI [Suspect]
     Active Substance: GOLIMUMAB
     Indication: RHEUMATOID ARTHRITIS
     Route: 058
  2. SIMPONI [Suspect]
     Active Substance: GOLIMUMAB
     Indication: RHEUMATOID ARTHRITIS
     Route: 058
     Dates: start: 20150120
  3. SIMPONI [Suspect]
     Active Substance: GOLIMUMAB
     Indication: RHEUMATOID ARTHRITIS
     Route: 058
     Dates: start: 20150326

REACTIONS (14)
  - Paraesthesia [Unknown]
  - Hypoaesthesia [Unknown]
  - Dizziness [Unknown]
  - Lethargy [Unknown]
  - Muscular weakness [Unknown]
  - Chromaturia [Unknown]
  - Tremor [Unknown]
  - Chills [Unknown]
  - Hyperhidrosis [Unknown]
  - Anxiety [Unknown]
  - Visual acuity reduced [Unknown]
  - Amnesia [Unknown]
  - Headache [Unknown]
  - Dysgeusia [Unknown]

NARRATIVE: CASE EVENT DATE: 20150120
